FAERS Safety Report 8399368-3 (Version None)
Quarter: 2012Q2

REPORT INFORMATION
  Report Type: 
  Country: None (occurrence: None)
  Receive Date: 20120531
  Receipt Date: 20120521
  Transmission Date: 20120825
  Serious: Yes (Death)
  Sender: FDA-Public Use
  Company Number: US-JNJFOC-20120305232

PATIENT
  Sex: Female
  Weight: 65.77 kg

DRUGS (4)
  1. ACETAMINOPHEN [Suspect]
     Indication: PAIN
     Route: 048
  2. NYQUIL [Suspect]
     Indication: NASOPHARYNGITIS
  3. NYQUIL [Suspect]
     Indication: INFLUENZA
  4. ACETAMINOPHEN [Suspect]
     Route: 048

REACTIONS (5)
  - DRUG ADMINISTRATION ERROR [None]
  - TOXICITY TO VARIOUS AGENTS [None]
  - MULTI-ORGAN FAILURE [None]
  - HEPATIC FAILURE [None]
  - BRAIN INJURY [None]
